FAERS Safety Report 13697027 (Version 5)
Quarter: 2017Q3

REPORT INFORMATION
  Report Type: Other
  Country: CN (occurrence: CN)
  Receive Date: 20170628
  Receipt Date: 20170911
  Transmission Date: 20171127
  Serious: Yes (Hospitalization, Other)
  Sender: FDA-Public Use
  Company Number: CN-DEXPHARM-20170943

PATIENT
  Age: 60 Year
  Sex: Female

DRUGS (4)
  1. LANSOPRAZOLE. [Suspect]
     Active Substance: LANSOPRAZOLE
     Indication: GASTRIC CANCER
     Route: 042
     Dates: start: 20120627
  2. LANSOPRAZOLE. [Suspect]
     Active Substance: LANSOPRAZOLE
     Dosage: WITH 0. 9% SODIUM CHLORIDE INJECTION 100 ML
     Route: 042
     Dates: start: 20120705
  3. MEZLOCILLIN [Concomitant]
     Active Substance: MEZLOCILLIN
     Indication: PROPHYLAXIS
     Route: 042
     Dates: start: 20120701
  4. MEZLOCILLIN [Concomitant]
     Active Substance: MEZLOCILLIN
     Dosage: WITH 0.9% SODIUM CHLORIDE INJECTION 100 ML
     Route: 042
     Dates: start: 20120705

REACTIONS (1)
  - Angioedema [Recovered/Resolved]

NARRATIVE: CASE EVENT DATE: 20120705
